FAERS Safety Report 10348058 (Version 2)
Quarter: 2014Q3

REPORT INFORMATION
  Report Type: Spontaneous
  Country: FR (occurrence: FR)
  Receive Date: 20140729
  Receipt Date: 20140729
  Transmission Date: 20150326
  Serious: Yes (Death, Hospitalization)
  Sender: FDA-Public Use
  Company Number: FR-TEVA-475963ISR

PATIENT
  Age: 33 Year
  Sex: Female

DRUGS (4)
  1. LEELOO 0.1MG/0.02MG [Suspect]
     Active Substance: ETHINYL ESTRADIOL\LEVONORGESTREL
     Indication: CONTRACEPTION
     Route: 048
     Dates: end: 20140304
  2. EFFEXOR [Suspect]
     Active Substance: VENLAFAXINE HYDROCHLORIDE
  3. SERESTA [Suspect]
     Active Substance: OXAZEPAM
  4. TERCIAN [Suspect]
     Active Substance: CYAMEMAZINE

REACTIONS (3)
  - Pelvic venous thrombosis [Fatal]
  - Pulmonary embolism [Fatal]
  - Cardio-respiratory arrest [Recovered/Resolved]

NARRATIVE: CASE EVENT DATE: 20140304
